FAERS Safety Report 10671025 (Version 1)
Quarter: 2014Q4

REPORT INFORMATION
  Report Type: Spontaneous
  Country: ES (occurrence: None)
  Receive Date: 20141219
  Receipt Date: 20141219
  Transmission Date: 20150529
  Serious: Yes (Other)
  Sender: FDA-Public Use
  Company Number: ES2014036547

PATIENT
  Age: 43 Year

DRUGS (1)
  1. ZIAGEN [Suspect]
     Active Substance: ABACAVIR SULFATE
     Indication: ACUTE HIV INFECTION
     Dosage: 1 VEZ AL DIA ,
     Route: 048
     Dates: start: 20141011, end: 20141020

REACTIONS (2)
  - Hypersensitivity [None]
  - Face oedema [None]

NARRATIVE: CASE EVENT DATE: 20141013
